FAERS Safety Report 10166073 (Version 3)
Quarter: 2014Q2

REPORT INFORMATION
  Report Type: Spontaneous
  Country: BR (occurrence: BR)
  Receive Date: 20140512
  Receipt Date: 20140528
  Transmission Date: 20141212
  Serious: Yes (Hospitalization)
  Sender: FDA-Public Use
  Company Number: BR-PFIZER INC-2014117337

PATIENT
  Age: 80 Year
  Sex: Male

DRUGS (2)
  1. XALATAN [Suspect]
     Dosage: 1 DF, DAILY
     Route: 047
  2. XALACOM [Suspect]
     Dosage: UNK
     Route: 047

REACTIONS (10)
  - Asthenia [Unknown]
  - Abasia [Unknown]
  - Urinary incontinence [Unknown]
  - Fall [Unknown]
  - Spinal fracture [Unknown]
  - Pneumonia [Unknown]
  - Product name confusion [Recovered/Resolved]
  - Wrong drug administered [Recovered/Resolved]
  - Eye irritation [Unknown]
  - Ocular hyperaemia [Unknown]
